FAERS Safety Report 21243638 (Version 3)
Quarter: 2022Q4

REPORT INFORMATION
  Report Type: Spontaneous
  Country: US (occurrence: US)
  Receive Date: 20220823
  Receipt Date: 20221028
  Transmission Date: 20230113
  Serious: No
  Sender: FDA-Public Use
  Company Number: US-JNJFOC-20220844193

PATIENT
  Sex: Female

DRUGS (1)
  1. WOMENS ROGAINE UNSCENTED [Suspect]
     Active Substance: MINOXIDIL
     Indication: Product used for unknown indication
     Dosage: DOSE: 1/2 CAPFUL BUT IT WAS MELTING SO UNSURE HOW MUCH WAS ACTUALLY GETTING APPLIED
     Route: 065

REACTIONS (2)
  - Poor quality product administered [Unknown]
  - Product formulation issue [Unknown]
